FAERS Safety Report 8352972-0 (Version None)
Quarter: 2012Q2

REPORT INFORMATION
  Report Type: 
  Country: None (occurrence: None)
  Receive Date: 20120511
  Receipt Date: 20110701
  Transmission Date: 20120825
  Serious: No
  Sender: FDA-Public Use
  Company Number: US-GLAXOSMITHKLINE-A0911693A

PATIENT
  Age: 88 Year
  Sex: Female

DRUGS (2)
  1. COUMADIN [Concomitant]
  2. DYNACIRC CR [Suspect]
     Indication: HYPERTENSION
     Dosage: 10MG PER DAY
     Route: 048
     Dates: start: 20090101

REACTIONS (3)
  - PRODUCT QUALITY ISSUE [None]
  - MEDICATION RESIDUE [None]
  - BLOOD PRESSURE INCREASED [None]
